FAERS Safety Report 21065284 (Version 1)
Quarter: 2022Q3

REPORT INFORMATION
  Report Type: Spontaneous
  Country: US (occurrence: US)
  Receive Date: 20220711
  Receipt Date: 20220711
  Transmission Date: 20221026
  Serious: Yes (Hospitalization, Other)
  Sender: FDA-Public Use
  Company Number: US-FreseniusKabi-FK202209595

PATIENT

DRUGS (4)
  1. REMIFENTANIL [Suspect]
     Active Substance: REMIFENTANIL
     Indication: Product used for unknown indication
     Dosage: (MOM RECEIVED THIS DRUG)
  2. LIDOCAINE [Suspect]
     Active Substance: LIDOCAINE
     Indication: Product used for unknown indication
     Dosage: 100 MG (MOM RECEIVED THIS DRUG)
  3. PROPOFOL [Suspect]
     Active Substance: PROPOFOL
     Indication: Product used for unknown indication
     Dosage: 150 MG (MOM RECEIVED THIS DRUG)
  4. FENTANYL [Suspect]
     Active Substance: FENTANYL
     Indication: Product used for unknown indication
     Dosage: 100 UG (MOM RECEIVED THIS DRUG)

REACTIONS (2)
  - Foetal exposure during pregnancy [Unknown]
  - Cardio-respiratory distress [Unknown]
